FAERS Safety Report 6244014-8 (Version None)
Quarter: 2009Q2

REPORT INFORMATION
  Report Type: 
  Country: None (occurrence: None)
  Receive Date: 20090623
  Receipt Date: 20090609
  Transmission Date: 20091009
  Serious: Yes (Hospitalization, Other)
  Sender: FDA-Public Use
  Company Number: 2009-00350

PATIENT
  Age: 72 Year
  Sex: Female

DRUGS (18)
  1. VELCADE [Suspect]
     Indication: MULTIPLE MYELOMA
     Dosage: 2 MG, INTRAVENOUS
     Route: 042
     Dates: start: 20090120
  2. SIMVASTATIN (SIMVASTATIN) [Concomitant]
  3. ASPIRIN [Concomitant]
  4. METOCLOPRAMIDE [Concomitant]
  5. LANSOPRAZOLE [Concomitant]
  6. CO-DANTHRAMER (DANITRON, POLOXAMER) [Concomitant]
  7. ALFACALCIDOL (ALFACALCIDOL) [Concomitant]
  8. METFORMIN HCL [Concomitant]
  9. CO-AMILOFRUSE (FUROSEMIDE, AMILORIDE HYDROCHLORIDE) [Concomitant]
  10. ENALAPRIL MALEATE [Concomitant]
  11. AMITRIPTYLINE HYDROCHLORIDE [Concomitant]
  12. DEXAMETHASONE [Concomitant]
  13. ACETAMINOPHEN [Concomitant]
  14. MOVICOL (SODIUM BICARBONATE, SODIUM CHLORIDE, MACROGOL, POTASSIUM CHLO [Concomitant]
  15. PALLADONE [Concomitant]
  16. TEMAZEPAM [Concomitant]
  17. BECONASE [Concomitant]
  18. HYDROMORPHONE HYDROCHLORIDE [Concomitant]

REACTIONS (2)
  - PAIN [None]
  - PANCREATITIS ACUTE [None]
